FAERS Safety Report 5144886-4 (Version None)
Quarter: 2006Q4

REPORT INFORMATION
  Report Type: 
  Country: None (occurrence: None)
  Receive Date: 20061107
  Receipt Date: 20061025
  Transmission Date: 20070319
  Serious: Yes (Hospitalization, Disabling)
  Sender: FDA-Public Use
  Company Number: GBWYE333625OCT06

PATIENT
  Sex: Female

DRUGS (1)
  1. ENBREL [Suspect]
     Indication: DRUG USE FOR UNKNOWN INDICATION
     Dosage: 25MG FREQUENCY UNKNOWN
     Route: 058
     Dates: start: 20060201, end: 20060725

REACTIONS (1)
  - INTERSTITIAL LUNG DISEASE [None]
